FAERS Safety Report 8164520-9 (Version None)
Quarter: 2012Q1

REPORT INFORMATION
  Report Type: 
  Country: None (occurrence: None)
  Receive Date: 20120224
  Receipt Date: 20120220
  Transmission Date: 20120608
  Serious: Yes (Life-Threatening, Hospitalization, Other)
  Sender: FDA-Public Use
  Company Number: US-ASTRAZENECA-2012SE02383

PATIENT
  Age: 57 Year
  Sex: Female
  Weight: 54.4 kg

DRUGS (3)
  1. SEROQUEL XR [Suspect]
     Route: 048
     Dates: start: 20111208, end: 20111215
  2. SEROQUEL XR [Suspect]
     Indication: BIPOLAR II DISORDER
     Route: 048
     Dates: start: 20111205, end: 20111215
  3. SEROQUEL XR [Suspect]
     Route: 048
     Dates: start: 20111205, end: 20111223

REACTIONS (3)
  - SUICIDAL BEHAVIOUR [None]
  - SUICIDE ATTEMPT [None]
  - ABNORMAL BEHAVIOUR [None]
